FAERS Safety Report 10043533 (Version 2)
Quarter: 2014Q2

REPORT INFORMATION
  Report Type: Spontaneous
  Country: US (occurrence: US)
  Receive Date: 20140328
  Receipt Date: 20140424
  Transmission Date: 20141212
  Serious: No
  Sender: FDA-Public Use
  Company Number: US-BAYER-2014-046593

PATIENT
  Age: 42 Year
  Sex: Female

DRUGS (2)
  1. FINACEA [Suspect]
     Indication: ROSACEA
     Dosage: UNK
     Dates: start: 20140302
  2. XYZAL [Concomitant]
     Indication: MULTIPLE ALLERGIES

REACTIONS (1)
  - Insomnia [Recovered/Resolved]
